FAERS Safety Report 4664708-5 (Version None)
Quarter: 2005Q2

REPORT INFORMATION
  Report Type: 
  Country: None (occurrence: None)
  Receive Date: 20050517
  Receipt Date: 20050517
  Transmission Date: 20051028
  Serious: Yes (Hospitalization)
  Sender: FDA-Public Use
  Company Number: None

PATIENT
  Age: 51 Year
  Sex: Female
  Weight: 47.0834 kg

DRUGS (9)
  1. CARBOPLATIN [Suspect]
     Indication: NON-SMALL CELL LUNG CANCER STAGE IV
     Dosage: IV  AUC 5  DAY 1
     Dates: start: 20050428
  2. GEMCITABINE [Suspect]
     Indication: NON-SMALL CELL LUNG CANCER STAGE IV
     Dosage: IV 1000MG/M2  DAY 1 + 8
     Route: 042
     Dates: start: 20050428
  3. GEMCITABINE [Suspect]
     Indication: NON-SMALL CELL LUNG CANCER STAGE IV
     Dosage: IV 1000MG/M2  DAY 1 + 8
     Route: 042
     Dates: start: 20050505
  4. PREVACID [Concomitant]
  5. PREDNISONE [Concomitant]
  6. ATROVENT [Concomitant]
  7. COMBIVENT [Concomitant]
  8. AEROBID [Concomitant]
  9. PAROXETINE HCL [Concomitant]

REACTIONS (7)
  - ANAEMIA [None]
  - BODY TEMPERATURE INCREASED [None]
  - CONSTIPATION [None]
  - DIZZINESS [None]
  - DYSPNOEA [None]
  - FATIGUE [None]
  - PYREXIA [None]
